FAERS Safety Report 5055974-5 (Version None)
Quarter: 2006Q3

REPORT INFORMATION
  Report Type: 
  Country: None (occurrence: None)
  Receive Date: 20060714
  Receipt Date: 20060630
  Transmission Date: 20061208
  Serious: Yes (Death)
  Sender: FDA-Public Use
  Company Number: 2006S1006176

PATIENT
  Age: 77 Year
  Sex: Female

DRUGS (5)
  1. CLOZAPINE [Suspect]
     Dosage: 100 MG;HS;PO
     Route: 048
     Dates: end: 20060601
  2. ZYPREXA [Concomitant]
  3. DEPAKOTE [Concomitant]
  4. HALDOL [Concomitant]
  5. RESTORIL [Concomitant]

REACTIONS (1)
  - DEATH [None]
